FAERS Safety Report 10269588 (Version 1)
Quarter: 2014Q2

REPORT INFORMATION
  Report Type: Spontaneous
  Country: DE (occurrence: None)
  Receive Date: 20140619
  Receipt Date: 20140619
  Transmission Date: 20141212
  Serious: Yes (Hospitalization)
  Sender: FDA-Public Use
  Company Number: GAM-197-14-DE

PATIENT
  Age: 28 Year
  Sex: Male

DRUGS (1)
  1. OCTAGAM [Suspect]
     Indication: POLYNEUROPATHY
     Dates: start: 20130429, end: 20140429

REACTIONS (1)
  - Hyperglycaemia [None]
